FAERS Safety Report 7770441-3 (Version None)
Quarter: 2011Q3

REPORT INFORMATION
  Report Type: 
  Country: None (occurrence: None)
  Receive Date: 20110922
  Receipt Date: 20110531
  Transmission Date: 20111222
  Serious: No
  Sender: FDA-Public Use
  Company Number: US-ASTRAZENECA-2011SE33485

PATIENT
  Age: 54 Year
  Sex: Female

DRUGS (6)
  1. SEROQUEL [Suspect]
     Indication: DEPRESSION
     Route: 048
     Dates: start: 20110201
  2. LAMICTAL [Concomitant]
  3. SEROQUEL [Suspect]
     Indication: SLEEP DISORDER
     Route: 048
     Dates: start: 20110201
  4. SEROQUEL [Suspect]
     Indication: BIPOLAR DISORDER
     Route: 048
     Dates: start: 20110201
  5. KLONOPIN [Concomitant]
  6. PRISTIQ [Concomitant]

REACTIONS (4)
  - CRYING [None]
  - FEELING JITTERY [None]
  - DRUG DOSE OMISSION [None]
  - INSOMNIA [None]
